FAERS Safety Report 14894324 (Version 3)
Quarter: 2018Q4

REPORT INFORMATION
  Report Type: Spontaneous
  Country: FI (occurrence: FI)
  Receive Date: 20180515
  Receipt Date: 20181026
  Transmission Date: 20190204
  Serious: Yes (Other)
  Sender: FDA-Public Use
  Company Number: FI-ROCHE-2121173

PATIENT
  Age: 54 Year
  Sex: Female

DRUGS (6)
  1. TROPICAMIDE. [Concomitant]
     Active Substance: TROPICAMIDE
  2. OCREVUS [Suspect]
     Active Substance: OCRELIZUMAB
     Indication: MULTIPLE SCLEROSIS
     Route: 065
     Dates: start: 201802
  3. VALAVIR (FINLAND) [Concomitant]
     Route: 065
  4. ACICLOVIR [Concomitant]
     Active Substance: ACYCLOVIR
     Indication: PROPHYLAXIS
     Dosage: PROFYLAXIS FOR HERPES ZOSTER OPHTHALMICUS AND HERPETIC KERATITIS
     Route: 065
     Dates: start: 2018
  5. ACICLOVIR [Concomitant]
     Active Substance: ACYCLOVIR
     Route: 065
  6. VALAVIR (FINLAND) [Concomitant]
     Dosage: FOR 10 DAYS
     Route: 065

REACTIONS (5)
  - Viral keratouveitis [Unknown]
  - Headache [Unknown]
  - Psoriasis [Recovering/Resolving]
  - Ophthalmic herpes zoster [Recovered/Resolved]
  - Herpes ophthalmic [Recovering/Resolving]

NARRATIVE: CASE EVENT DATE: 201805
